FAERS Safety Report 7702311-0 (Version None)
Quarter: 2011Q3

REPORT INFORMATION
  Report Type: 
  Country: None (occurrence: None)
  Receive Date: 20110822
  Receipt Date: 20110817
  Transmission Date: 20111222
  Serious: Yes (Death, Life-Threatening, Other)
  Sender: FDA-Public Use
  Company Number: JP-PFIZER INC-2011169035

PATIENT
  Age: 70 Year
  Sex: Male
  Weight: 50 kg

DRUGS (13)
  1. TEMSIROLIMUS [Suspect]
     Indication: RENAL CELL CARCINOMA
     Dosage: 25 MG, 1X/DAY
     Route: 042
     Dates: start: 20110526, end: 20110526
  2. POLARAMINE [Concomitant]
     Dosage: 5 MG, 1X/DAY
     Route: 042
     Dates: start: 20110602, end: 20110602
  3. RINDERON #1 [Concomitant]
     Indication: BRAIN OEDEMA
     Dosage: 4 MG, 1X/DAY
     Route: 042
     Dates: start: 20110512
  4. VITAMEDIN INTRAVENOUS [Concomitant]
     Indication: RENAL CELL CARCINOMA
  5. PRIMPERAN TAB [Concomitant]
     Indication: PROPHYLAXIS
     Dosage: 10 MG, 1X/DAY
     Route: 042
     Dates: start: 20110512
  6. POLARAMINE [Concomitant]
     Indication: PROPHYLAXIS
     Dosage: 5 MG, 1X/DAY
     Route: 042
     Dates: start: 20110526
  7. ADONA [Concomitant]
     Indication: PROPHYLAXIS
     Dosage: 100 MG, 1X/DAY
     Route: 042
     Dates: start: 20110512
  8. TEMSIROLIMUS [Suspect]
     Dosage: 25 MG, 1X/DAY
     Route: 042
     Dates: start: 20110602, end: 20110602
  9. VITAMEDIN INTRAVENOUS [Concomitant]
     Indication: HYPOPHAGIA
     Dosage: 1 AMPULE, 1X/DAY
     Route: 042
     Dates: start: 20110512
  10. HACHIAZULE [Concomitant]
     Indication: RENAL CELL CARCINOMA
  11. FAMOTIDINE [Concomitant]
     Indication: PROPHYLAXIS
     Dosage: 20 MG, 1X/DAY
     Route: 042
     Dates: start: 20110512
  12. HACHIAZULE [Concomitant]
     Indication: PROPHYLAXIS
     Dosage: 2 G, 1X/DAY
     Route: 048
     Dates: start: 20110525
  13. GLYCEOL [Concomitant]
     Indication: BRAIN OEDEMA
     Dosage: 200 ML, 1X/DAY
     Route: 042
     Dates: start: 20110512

REACTIONS (3)
  - PLATELET COUNT DECREASED [None]
  - PNEUMONIA [None]
  - WHITE BLOOD CELL COUNT DECREASED [None]
